FAERS Safety Report 8408191-2 (Version None)
Quarter: 2012Q2

REPORT INFORMATION
  Report Type: 
  Country: None (occurrence: None)
  Receive Date: 20120604
  Receipt Date: 20120525
  Transmission Date: 20120825
  Serious: Yes (Other)
  Sender: FDA-Public Use
  Company Number: CH-JNJFOC-20120307214

PATIENT
  Age: 61 Year
  Sex: Female
  Weight: 78 kg

DRUGS (7)
  1. REMICADE [Suspect]
     Route: 042
     Dates: start: 20090625, end: 20100324
  2. REMICADE [Suspect]
     Indication: COLITIS ULCERATIVE
     Dosage: DURATION= ^SEVERAL YEARS^  400  MG
     Route: 042
     Dates: start: 20040704
  3. REMICADE [Suspect]
     Indication: CROHN'S DISEASE
     Dosage: DURATION= ^SEVERAL YEARS^  400  MG
     Route: 042
     Dates: start: 20040704
  4. CALCIMAGON D3 [Concomitant]
     Indication: CROHN'S DISEASE
     Route: 048
  5. REMICADE [Suspect]
     Route: 042
     Dates: start: 20090625, end: 20100324
  6. PREDNISONE [Concomitant]
     Indication: CROHN'S DISEASE
     Dosage: DIGRESSIVE DOSES
     Dates: start: 20070101
  7. OMEPRAZOLE [Concomitant]
     Indication: GASTROOESOPHAGEAL REFLUX DISEASE

REACTIONS (1)
  - ENDOMETRIAL CANCER METASTATIC [None]
